FAERS Safety Report 6158112-0 (Version None)
Quarter: 2009Q2

REPORT INFORMATION
  Report Type: 
  Country: None (occurrence: None)
  Receive Date: 20090417
  Receipt Date: 20090414
  Transmission Date: 20091009
  Serious: Yes (Other)
  Sender: FDA-Public Use
  Company Number: PHEH2005US07182

PATIENT
  Age: 57 Year
  Sex: Female

DRUGS (5)
  1. AREDIA [Suspect]
     Dosage: MONTHLY
     Route: 042
     Dates: start: 19990101, end: 20010101
  2. ZOMETA [Suspect]
     Indication: BREAST CANCER METASTATIC
     Dosage: 4 MG, UNK
     Route: 042
     Dates: start: 20020101
  3. XELODA [Concomitant]
  4. PREVACID [Concomitant]
  5. ZESTRIL [Concomitant]

REACTIONS (17)
  - ABSCESS DRAINAGE [None]
  - ANAEMIA [None]
  - BONE DEBRIDEMENT [None]
  - BONE PAIN [None]
  - DEFORMITY [None]
  - ENDODONTIC PROCEDURE [None]
  - INFECTION [None]
  - INTERVERTEBRAL DISC PROTRUSION [None]
  - MUCOSAL ULCERATION [None]
  - OSTEOLYSIS [None]
  - OSTEOMYELITIS [None]
  - OSTEONECROSIS [None]
  - PAIN [None]
  - PULMONARY HYPERTENSION [None]
  - SURGERY [None]
  - THYROID CANCER [None]
  - TOOTH EXTRACTION [None]
